FAERS Safety Report 4874219-X (Version None)
Quarter: 2006Q1

REPORT INFORMATION
  Report Type: 
  Country: None (occurrence: None)
  Receive Date: 20060106
  Receipt Date: 20050420
  Transmission Date: 20060701
  Serious: Yes (Hospitalization, Disabling)
  Sender: FDA-Public Use
  Company Number: US-MERCK-0504USA03942

PATIENT
  Age: 58 Year
  Sex: Male
  Weight: 84 kg

DRUGS (11)
  1. VIOXX [Suspect]
     Indication: OSTEOARTHRITIS
     Route: 048
     Dates: start: 20000601, end: 20010125
  2. VIOXX [Suspect]
     Route: 048
     Dates: start: 20010601
  3. VIOXX [Suspect]
     Route: 048
     Dates: start: 20000601
  4. VIOXX [Suspect]
     Route: 048
     Dates: start: 20000601
  5. VIOXX [Suspect]
     Indication: ARTHRITIS
     Route: 048
     Dates: start: 20000601, end: 20010125
  6. VIOXX [Suspect]
     Route: 048
     Dates: start: 20010601
  7. VIOXX [Suspect]
     Route: 048
     Dates: start: 20000601
  8. VIOXX [Suspect]
     Route: 048
     Dates: start: 20000601
  9. AVANDIA [Concomitant]
     Route: 065
  10. GLUCOPHAGE [Concomitant]
     Route: 065
  11. GLUCOTROL [Concomitant]
     Route: 065

REACTIONS (6)
  - CARDIAC DISORDER [None]
  - DIABETES MELLITUS INADEQUATE CONTROL [None]
  - GRAVITATIONAL OEDEMA [None]
  - LACUNAR INFARCTION [None]
  - NEUROPATHY PERIPHERAL [None]
  - OVERDOSE [None]
